FAERS Safety Report 5277340-X (Version None)
Quarter: 2007Q1

REPORT INFORMATION
  Report Type: 
  Country: None (occurrence: None)
  Receive Date: 20061213
  Receipt Date: 20060626
  Transmission Date: 20070707
  Serious: No
  Sender: FDA-Public Use
  Company Number: 2006UW13500

PATIENT
  Age: 42 Year
  Sex: Male

DRUGS (6)
  1. SEROQUEL [Suspect]
     Indication: BIPOLAR DISORDER
     Dosage: 25 MG DAILY PO
     Route: 048
     Dates: start: 20060301
  2. SEROQUEL [Suspect]
     Indication: MANIA
     Dosage: 25 MG DAILY PO
     Route: 048
     Dates: start: 20060301
  3. SEROQUEL [Suspect]
     Indication: BIPOLAR DISORDER
     Dosage: 300 MG DAILY PO
     Route: 048
     Dates: end: 20060601
  4. SEROQUEL [Suspect]
     Indication: MANIA
     Dosage: 300 MG DAILY PO
     Route: 048
     Dates: end: 20060601
  5. WELLBUTRIN [Concomitant]
  6. XANAX [Concomitant]

REACTIONS (3)
  - EXTRAPYRAMIDAL DISORDER [None]
  - RESTLESSNESS [None]
  - TREMOR [None]
